FAERS Safety Report 9960912 (Version 1)
Quarter: 2014Q1

REPORT INFORMATION
  Report Type: Report from Study
  Country: US (occurrence: US)
  Receive Date: 20140305
  Receipt Date: 20140305
  Transmission Date: 20141002
  Serious: No
  Sender: FDA-Public Use
  Company Number: US-ABBVIE-13P-163-1109433-00

PATIENT
  Age: 64 Year
  Sex: Male
  Weight: 99.88 kg

DRUGS (5)
  1. HUMIRA [Suspect]
     Indication: CROHN^S DISEASE
     Dates: start: 20121218
  2. ASACOL [Concomitant]
     Indication: CROHN^S DISEASE
  3. COLESTRYAM [Concomitant]
     Indication: HYPERCHOLESTEROLAEMIA
  4. FLOMAX [Concomitant]
     Indication: BENIGN PROSTATIC HYPERPLASIA
  5. SIMVASTATIN [Concomitant]
     Indication: HYPERCHOLESTEROLAEMIA

REACTIONS (1)
  - Injection site erythema [Not Recovered/Not Resolved]
